FAERS Safety Report 21084142 (Version 4)
Quarter: 2023Q1

REPORT INFORMATION
  Report Type: Report from Study
  Country: KR (occurrence: None)
  Receive Date: 20220714
  Receipt Date: 20230317
  Transmission Date: 20230417
  Serious: Yes (Hospitalization, Disabling)
  Sender: FDA-Public Use
  Company Number: KR-Eisai Medical Research-EC-2022-118827

PATIENT
  Age: 63 Year
  Sex: Female
  Weight: 76.1 kg

DRUGS (11)
  1. LENVIMA [Suspect]
     Active Substance: LENVATINIB
     Indication: Endometrial cancer
     Route: 048
     Dates: start: 20220408, end: 20220421
  2. KEYTRUDA [Suspect]
     Active Substance: PEMBROLIZUMAB
     Indication: Endometrial cancer
     Route: 042
     Dates: start: 20220411, end: 20220411
  3. CYMBALTA [Concomitant]
     Active Substance: DULOXETINE HYDROCHLORIDE
     Indication: Peripheral sensory neuropathy
     Dosage: 1 CAP
     Route: 048
     Dates: start: 20210608
  4. ENTELON T [Concomitant]
     Indication: Lymphoedema
     Dosage: 1 TAB
     Route: 048
     Dates: start: 20220311
  5. KARY UNI OPHTHALMIC SOLUTION [Concomitant]
     Indication: Cataract
     Dosage: 0.05 MG/ML. 2-3 DROPS
     Route: 047
  6. ALEGYSAL OPHTHALMIC SOLUTION [Concomitant]
     Indication: Conjunctivitis allergic
     Dosage: 1 MG/ML. 2-3 DROPS
     Route: 047
  7. ABILIFY [Concomitant]
     Active Substance: ARIPIPRAZOLE
     Indication: Insomnia
     Dosage: 1 TAB
     Route: 048
  8. LORAVAN T [Concomitant]
     Indication: Insomnia
     Dosage: 1 TAB
     Route: 048
  9. SEROQUEL [Concomitant]
     Active Substance: QUETIAPINE FUMARATE
     Indication: Insomnia
     Dosage: 1 TAB
     Route: 048
  10. PARAMACE T [Concomitant]
     Indication: Peripheral sensory neuropathy
     Dosage: 2 TABLETS
     Route: 048
  11. TROPICAMIDE [Concomitant]
     Active Substance: TROPICAMIDE
     Indication: Cataract
     Dosage: 1 DROP
     Route: 047
     Dates: start: 20220504

REACTIONS (2)
  - Cerebral infarction [Recovering/Resolving]
  - Constipation [Recovered/Resolved]

NARRATIVE: CASE EVENT DATE: 20220420
